FAERS Safety Report 8835533 (Version 2)
Quarter: 2012Q4

REPORT INFORMATION
  Report Type: 
  Country: US (occurrence: US)
  Receive Date: 20121011
  Receipt Date: 20121108
  Transmission Date: 20130627
  Serious: No
  Sender: FDA-Public Use
  Company Number: US-ASTRAZENECA-2012SE75715

PATIENT
  Age: 33 Year
  Sex: Female

DRUGS (3)
  1. SYMBICORT PMDI [Suspect]
     Indication: ASTHMA
     Dosage: 160-4.5 MCG, TWO TIMES A DAY
     Route: 055
  2. SYMBICORT PMDI [Suspect]
     Indication: ASTHMA
     Dosage: 160-4.5 MCG, DAILY
     Route: 055
  3. NASONEX [Concomitant]

REACTIONS (3)
  - Asthma [Unknown]
  - Activities of daily living impaired [Unknown]
  - Intentional drug misuse [Unknown]
